FAERS Safety Report 7343084-3 (Version None)
Quarter: 2011Q1

REPORT INFORMATION
  Report Type: 
  Country: None (occurrence: None)
  Receive Date: 20110310
  Receipt Date: 20110212
  Transmission Date: 20110831
  Serious: No
  Sender: FDA-Public Use
  Company Number: US-B.I. PHARMACEUTICALS,INC./RIDGEFIELD-2011-BP-05582BP

PATIENT
  Sex: Female

DRUGS (5)
  1. ZANTAC 75 [Suspect]
     Indication: DYSPEPSIA
     Dosage: 75 MG
     Route: 048
     Dates: start: 20101014
  2. ZETIA [Concomitant]
     Indication: BLOOD CHOLESTEROL INCREASED
  3. ASCORBIC ACID [Concomitant]
  4. MAGNESIUM [Concomitant]
  5. MULTI-VITAMINS [Concomitant]

REACTIONS (2)
  - MYALGIA [None]
  - MUSCULOSKELETAL PAIN [None]
